FAERS Safety Report 8909704 (Version 1)
Quarter: 2012Q4

REPORT INFORMATION
  Report Type: 
  Country: US (occurrence: US)
  Receive Date: 20121115
  Receipt Date: 20121115
  Transmission Date: 20130627
  Serious: Yes (Hospitalization)
  Sender: FDA-Public Use
  Company Number: US-GENZYME-FABR-1002834

PATIENT
  Age: 61 None
  Sex: Male

DRUGS (1)
  1. FABRAZYME [Suspect]
     Indication: FABRY^S DISEASE
     Dosage: 60 mg, q2w
     Route: 042
     Dates: start: 20121016

REACTIONS (2)
  - Cardiac disorder [Not Recovered/Not Resolved]
  - Cerebrovascular accident [Unknown]
